FAERS Safety Report 7225666-2 (Version None)
Quarter: 2011Q1

REPORT INFORMATION
  Report Type: 
  Country: None (occurrence: None)
  Receive Date: 20110110
  Receipt Date: 20110110
  Transmission Date: 20110831
  Serious: Yes (Life-Threatening)
  Sender: FDA-Public Use
  Company Number: None

PATIENT
  Age: 58 Year
  Sex: Male
  Weight: 99.7913 kg

DRUGS (2)
  1. ANDROGEL [Suspect]
     Indication: BLOOD TESTOSTERONE DECREASED
     Dosage: 5 G PACKETS ONCE PER DAY CUTANEOUS : 7.5 G - DOCTOR INCREASE DOSAGE ONCE PER DAY CUTANEOUS
     Route: 003
     Dates: start: 20100908, end: 20101103
  2. ANDROGEL [Suspect]
     Indication: BLOOD TESTOSTERONE DECREASED
     Dosage: 5 G PACKETS ONCE PER DAY CUTANEOUS : 7.5 G - DOCTOR INCREASE DOSAGE ONCE PER DAY CUTANEOUS
     Route: 003
     Dates: start: 20101103, end: 20101113

REACTIONS (10)
  - FAMILY STRESS [None]
  - AMNESIA [None]
  - HALLUCINATION [None]
  - LEGAL PROBLEM [None]
  - AGGRESSION [None]
  - PSYCHOTIC BEHAVIOUR [None]
  - ANGER [None]
  - DISORIENTATION [None]
  - PANIC ATTACK [None]
  - ALCOHOL USE [None]
